FAERS Safety Report 15456532 (Version 2)
Quarter: 2018Q4

REPORT INFORMATION
  Report Type: Spontaneous
  Country: CL (occurrence: CL)
  Receive Date: 20181002
  Receipt Date: 20181011
  Transmission Date: 20190204
  Serious: Yes (Life-Threatening, Other)
  Sender: FDA-Public Use
  Company Number: CL-PFIZER INC-2018350483

PATIENT
  Age: 16 Year
  Sex: Male

DRUGS (11)
  1. CYTARABINE. [Suspect]
     Active Substance: CYTARABINE
     Dosage: 50 MG, CYCLIC (IN THE RESCUE THERAPY, THE PATIENT RECEIVED SIX PULSES OF IC)
     Route: 037
  2. METHOTREXATE. [Suspect]
     Active Substance: METHOTREXATE
     Dosage: 15 MG, CYCLIC IN THE RESCUE THERAPY, THE PATIENT RECEIVED SIX PULSES OF IC
     Route: 037
  3. BETAMETHASONE. [Suspect]
     Active Substance: BETAMETHASONE
     Indication: ACUTE LYMPHOCYTIC LEUKAEMIA
     Dosage: 4 MG, CYCLIC (ON DAYS 1, 8, 15 AND 22)
     Route: 037
  4. MERCAPTOPURINE. [Concomitant]
     Active Substance: MERCAPTOPURINE
     Indication: ACUTE LYMPHOCYTIC LEUKAEMIA
     Dosage: 60 MG/M2/DAY ON DAYS 1-14 AND 29-42
     Route: 048
  5. CYCLOPHOSPHAMIDE. [Concomitant]
     Active Substance: CYCLOPHOSPHAMIDE
     Indication: ACUTE LYMPHOCYTIC LEUKAEMIA
     Dosage: 1000 MG/M2, CYCLIC DAYS 1 AND 29
     Route: 042
  6. CYTARABINE. [Suspect]
     Active Substance: CYTARABINE
     Indication: ACUTE LYMPHOCYTIC LEUKAEMIA
     Dosage: 50 MG, CYCLIC (ON DAYS 1, 8, 15 AND 22)
     Route: 037
  7. CYTARABINE. [Concomitant]
     Active Substance: CYTARABINE
     Indication: ACUTE LYMPHOCYTIC LEUKAEMIA
     Dosage: 75 MG/M2/DAY, IV, FOR 4 DAYS EACH TIME, DAYS 1-4, 8-11, 29-32, 36-39
     Route: 042
  8. METHOTREXATE. [Suspect]
     Active Substance: METHOTREXATE
     Indication: ACUTE LYMPHOCYTIC LEUKAEMIA
     Dosage: 15 MG, CYCLIC ON DAYS 1, 8, 15 AND 22.
     Route: 037
  9. VINCRISTINE [Concomitant]
     Active Substance: VINCRISTINE
     Indication: ACUTE LYMPHOCYTIC LEUKAEMIA
     Dosage: 1.5 MG/M2/DAY, IV (MAX. DOSE 2 MG), DAYS 15, 22, 43 AND 50
     Route: 042
  10. BETAMETHASONE. [Suspect]
     Active Substance: BETAMETHASONE
     Dosage: 4 MG, (CYCLIC IN THE RESCUE THERAPY, THE PATIENT RECEIVED SIX PULSES OF IC)
     Route: 037
  11. ASPARAGINASE [Concomitant]
     Active Substance: ASPARAGINASE
     Indication: ACUTE LYMPHOCYTIC LEUKAEMIA
     Dosage: 6,000 U/M2, IM, DAYS 15, 17, 19 AND 43, 45, 47)
     Route: 030

REACTIONS (5)
  - Urinary incontinence [Not Recovered/Not Resolved]
  - Hyperreflexia [Not Recovered/Not Resolved]
  - Myelopathy [Not Recovered/Not Resolved]
  - Hypoaesthesia [Not Recovered/Not Resolved]
  - Paraplegia [Not Recovered/Not Resolved]
